FAERS Safety Report 13764129 (Version 1)
Quarter: 2017Q3

REPORT INFORMATION
  Report Type: Spontaneous
  Country: US (occurrence: US)
  Receive Date: 20170718
  Receipt Date: 20170718
  Transmission Date: 20171127
  Serious: No
  Sender: FDA-Public Use
  Company Number: US-VANDA PHARMACEUTICALS, INC-2017TASUS001546

PATIENT
  Age: 67 Year
  Sex: Female

DRUGS (6)
  1. PROZAC [Concomitant]
     Active Substance: FLUOXETINE HYDROCHLORIDE
     Indication: DEPRESSION
  2. PRILOSEC [Concomitant]
     Active Substance: OMEPRAZOLE MAGNESIUM
     Indication: GASTROOESOPHAGEAL REFLUX DISEASE
  3. SYNTHROID [Concomitant]
     Active Substance: LEVOTHYROXINE SODIUM
     Indication: PRODUCT USED FOR UNKNOWN INDICATION
  4. HETLIOZ [Suspect]
     Active Substance: TASIMELTEON
     Indication: CIRCADIAN RHYTHM SLEEP DISORDER
     Dosage: 20 MG, QHS 1 HOUR PRIOR TO BEDTIME
     Route: 048
     Dates: start: 201607
  5. NORCO [Concomitant]
     Active Substance: ACETAMINOPHEN\HYDROCODONE BITARTRATE
     Indication: PAIN
  6. GABAPENTIN. [Concomitant]
     Active Substance: GABAPENTIN
     Indication: PAIN

REACTIONS (7)
  - Somnolence [Not Recovered/Not Resolved]
  - Chest pain [Not Recovered/Not Resolved]
  - Fall [Not Recovered/Not Resolved]
  - Balance disorder [Unknown]
  - Confusional state [Not Recovered/Not Resolved]
  - Middle insomnia [Not Recovered/Not Resolved]
  - Fatigue [Unknown]

NARRATIVE: CASE EVENT DATE: 20161225
